FAERS Safety Report 16959190 (Version 1)
Quarter: 2019Q4

REPORT INFORMATION
  Report Type: Report from Study
  Country: None (occurrence: CO)
  Receive Date: 20191024
  Receipt Date: 20191024
  Transmission Date: 20200122
  Serious: Yes (Hospitalization)
  Sender: FDA-Public Use
  Company Number: CO-ABBVIE-19K-036-2974348-00

PATIENT
  Age: 59 Year
  Sex: Male
  Weight: 69 kg

DRUGS (2)
  1. ZEMPLAR [Suspect]
     Active Substance: PARICALCITOL
     Indication: HYPERPARATHYROIDISM SECONDARY
     Route: 042
     Dates: start: 20160531, end: 20190918
  2. HUMIRA [Suspect]
     Active Substance: ADALIMUMAB
     Indication: PRODUCT USED FOR UNKNOWN INDICATION
     Route: 058
     Dates: end: 2019

REACTIONS (6)
  - Hypersensitivity [Unknown]
  - Pruritus [Unknown]
  - Blister [Unknown]
  - Haemoglobin decreased [Unknown]
  - Chest pain [Unknown]
  - Rash [Unknown]

NARRATIVE: CASE EVENT DATE: 201908
